FAERS Safety Report 19574735 (Version 2)
Quarter: 2021Q3

REPORT INFORMATION
  Report Type: Report from Study
  Country: US (occurrence: US)
  Receive Date: 20210719
  Receipt Date: 20210817
  Transmission Date: 20211014
  Serious: No
  Sender: FDA-Public Use
  Company Number: US-ORGANON-O2107USA001198

PATIENT
  Age: 33 Year
  Sex: Female
  Weight: 99.3 kg

DRUGS (1)
  1. IMPLANON [Suspect]
     Active Substance: ETONOGESTREL
     Dosage: 1 IMPLANT
     Route: 059
     Dates: start: 20210517

REACTIONS (1)
  - Medical device site discomfort [Not Recovered/Not Resolved]

NARRATIVE: CASE EVENT DATE: 20210712
